FAERS Safety Report 13498577 (Version 3)
Quarter: 2017Q2

REPORT INFORMATION
  Report Type: Spontaneous
  Country: GB (occurrence: GB)
  Receive Date: 20170501
  Receipt Date: 20170511
  Transmission Date: 20170830
  Serious: Yes (Hospitalization, Other)
  Sender: FDA-Public Use
  Company Number: GB-CONCORDIA PHARMACEUTICALS INC.-E2B_00008097

PATIENT
  Age: 68 Year
  Sex: Female

DRUGS (5)
  1. METHOTREXATE. [Suspect]
     Active Substance: METHOTREXATE
     Indication: RHEUMATOID ARTHRITIS
     Route: 065
  2. SULFASALAZINE. [Suspect]
     Active Substance: SULFASALAZINE
     Indication: RHEUMATOID ARTHRITIS
     Route: 065
  3. VORICONAZOLE. [Suspect]
     Active Substance: VORICONAZOLE
     Indication: CEREBRAL ASPERGILLOSIS
     Route: 065
     Dates: start: 201607
  4. VORICONAZOLE. [Suspect]
     Active Substance: VORICONAZOLE
     Route: 065
  5. HYDROXYCHLOROQUINE [Suspect]
     Active Substance: HYDROXYCHLOROQUINE
     Indication: RHEUMATOID ARTHRITIS
     Route: 065

REACTIONS (11)
  - Culture tissue specimen positive [Unknown]
  - Intracranial mass [Unknown]
  - Aspergillus infection [Unknown]
  - Brain midline shift [Unknown]
  - Cerebral aspergillosis [Recovering/Resolving]
  - Confusional state [Unknown]
  - Leukopenia [Recovered/Resolved]
  - Aphasia [Unknown]
  - Hemiparesis [Unknown]
  - Brain oedema [Unknown]
  - Acute haemorrhagic leukoencephalitis [Unknown]
